FAERS Safety Report 10868778 (Version 1)
Quarter: 2015Q1

REPORT INFORMATION
  Report Type: Spontaneous
  Country: US (occurrence: US)
  Receive Date: 20150225
  Receipt Date: 20150225
  Transmission Date: 20150721
  Serious: Yes (Hospitalization)
  Sender: FDA-Public Use
  Company Number: US-MYLANLABS-US2014024115

PATIENT
  Age: 64 Year
  Sex: Male

DRUGS (5)
  1. VANCOMYCIN [Suspect]
     Active Substance: VANCOMYCIN
     Indication: PERITONITIS
     Dosage: UNK
     Route: 033
     Dates: start: 201310
  2. FORTAZ [Suspect]
     Active Substance: CEFTAZIDIME SODIUM
     Indication: PERITONITIS
     Dosage: UNK
     Route: 033
     Dates: start: 2013
  3. GENTAMICIN SULFATE. [Suspect]
     Active Substance: GENTAMICIN SULFATE
     Indication: PERITONITIS
     Dosage: UNK
     Route: 033
     Dates: start: 20131023, end: 20131023
  4. EXTRANEAL [Concomitant]
     Active Substance: CALCIUM CHLORIDE\ICODEXTRIN\MAGNESIUM CHLORIDE\SODIUM CHLORIDE\SODIUM LACTATE
     Dosage: UNK
  5. AUGMENTIN [Suspect]
     Active Substance: AMOXICILLIN\CLAVULANATE POTASSIUM
     Indication: PERITONITIS
     Dosage: UNK
     Route: 048

REACTIONS (1)
  - Sepsis [Recovered/Resolved]
